FAERS Safety Report 13603975 (Version 2)
Quarter: 2017Q2

REPORT INFORMATION
  Report Type: Spontaneous
  Country: DE (occurrence: DE)
  Receive Date: 20170602
  Receipt Date: 20170615
  Transmission Date: 20170830
  Serious: Yes (Death, Other)
  Sender: FDA-Public Use
  Company Number: DE-CONCORDIA PHARMACEUTICALS INC.-GSH201706-003276

PATIENT
  Age: 60 Year
  Sex: Male

DRUGS (5)
  1. PREDNISOLONE. [Suspect]
     Active Substance: PREDNISOLONE
     Route: 042
  2. NIVOLUMAB [Suspect]
     Active Substance: NIVOLUMAB
  3. PREDNISOLONE. [Suspect]
     Active Substance: PREDNISOLONE
     Route: 048
  4. ALPROSTADIL. [Suspect]
     Active Substance: ALPROSTADIL
     Route: 042
  5. IPILIMUMAB [Suspect]
     Active Substance: IPILIMUMAB
     Dosage: 3MG/KG BW

REACTIONS (4)
  - Gangrene [Unknown]
  - Metastatic neoplasm [Unknown]
  - Multiple organ dysfunction syndrome [Fatal]
  - Disease progression [Unknown]
